FAERS Safety Report 5254715-6 (Version None)
Quarter: 2007Q1

REPORT INFORMATION
  Report Type: 
  Country: None (occurrence: None)
  Receive Date: 20070227
  Receipt Date: 20070209
  Transmission Date: 20070707
  Serious: Yes (Life-Threatening, Hospitalization)
  Sender: FDA-Public Use
  Company Number: 15697

PATIENT
  Age: 78 Year
  Sex: Male

DRUGS (14)
  1. CYTARABINE [Suspect]
     Indication: ACUTE MYELOID LEUKAEMIA
     Dosage: 20 MG/M2 QD SC
     Route: 058
     Dates: start: 20060802, end: 20061201
  2. VITAMIN B12 /00056201/ [Concomitant]
  3. PROSCAR [Concomitant]
  4. ATENOLOL [Concomitant]
  5. K-DUR 10 [Concomitant]
  6. CENTRUM SILVER [Concomitant]
  7. TUMS [Concomitant]
  8. PRED FORTE [Concomitant]
  9. ACULAR [Concomitant]
  10. ARANESP [Concomitant]
  11. NEULASTA [Concomitant]
  12. TYLENOL [Concomitant]
  13. ZOSYN [Concomitant]
  14. VANCOMYCIN HYDROCHLORIDE [Concomitant]

REACTIONS (7)
  - BODY TEMPERATURE INCREASED [None]
  - CAT SCRATCH DISEASE [None]
  - COLONIC POLYP [None]
  - GASTROINTESTINAL HAEMORRHAGE [None]
  - HAEMORRHOIDS [None]
  - NEUTROPENIA [None]
  - THROMBOCYTOPENIA [None]
